FAERS Safety Report 9442398 (Version 1)
Quarter: 2013Q3

REPORT INFORMATION
  Report Type: Spontaneous
  Country: US (occurrence: US)
  Receive Date: 20130806
  Receipt Date: 20130806
  Transmission Date: 20140515
  Serious: Yes (Other)
  Sender: FDA-Public Use
  Company Number: US-GLAXOSMITHKLINE-A1019454A

PATIENT
  Age: 7 Year
  Sex: Male

DRUGS (11)
  1. ADVAIR [Suspect]
     Indication: ASTHMA
     Route: 055
     Dates: start: 20130401, end: 20130406
  2. ALBUTEROL [Concomitant]
  3. BENADRYL [Concomitant]
  4. ALLEGRA [Concomitant]
  5. FLONASE [Concomitant]
  6. DESONIDE [Concomitant]
  7. EPINEPHRINE [Concomitant]
     Route: 058
  8. TRILEPTAL [Concomitant]
  9. PREDNISONE [Concomitant]
  10. KEPPRA [Concomitant]
  11. KENALOG CREAM [Concomitant]

REACTIONS (2)
  - Anaphylactic shock [Not Recovered/Not Resolved]
  - Hypersensitivity [Not Recovered/Not Resolved]
